FAERS Safety Report 4547272-0 (Version None)
Quarter: 2005Q1

REPORT INFORMATION
  Report Type: 
  Country: None (occurrence: None)
  Receive Date: 20050107
  Receipt Date: 20041001
  Transmission Date: 20050727
  Serious: Yes (Hospitalization)
  Sender: FDA-Public Use
  Company Number: ES-MERCK-0410ESP00014

PATIENT
  Age: 72 Year
  Sex: Female

DRUGS (14)
  1. VIOXX [Suspect]
     Indication: OSTEOARTHRITIS
     Route: 048
     Dates: start: 20010101, end: 20041001
  2. TICLOPIDINE HYDROCHLORIDE [Concomitant]
     Route: 065
  3. CARVEDILOL [Concomitant]
     Route: 065
  4. DIGOXIN [Concomitant]
     Route: 065
  5. SERTRALINE HYDROCHLORIDE [Concomitant]
     Route: 065
  6. CAFFEINE, CITRATED AND NITROGLYCERIN [Concomitant]
     Route: 065
  7. NITROGLYCERIN [Concomitant]
     Route: 065
  8. SPIRONOLACTONE [Concomitant]
     Route: 065
  9. CLONIXIN LYSINE [Concomitant]
     Route: 065
  10. FUROSEMIDE [Concomitant]
     Route: 065
  11. ASPIRIN [Concomitant]
     Route: 065
  12. PRAVASTATIN SODIUM [Concomitant]
     Route: 065
  13. OMEPRAZOLE [Concomitant]
     Route: 065
  14. CALCIUM CARBONATE AND CHOLECALCIFEROL [Concomitant]
     Route: 065

REACTIONS (3)
  - ANGINA PECTORIS [None]
  - AORTIC VALVE INCOMPETENCE [None]
  - ATRIAL FIBRILLATION [None]
